FAERS Safety Report 13179517 (Version 1)
Quarter: 2017Q1

REPORT INFORMATION
  Report Type: Spontaneous
  Country: US (occurrence: US)
  Receive Date: 20170202
  Receipt Date: 20170202
  Transmission Date: 20170428
  Serious: Yes (Other)
  Sender: FDA-Public Use
  Company Number: US-TAKEDA-2017TUS002251

PATIENT
  Sex: Female
  Weight: 79.83 kg

DRUGS (13)
  1. MAGNESIUM [Concomitant]
     Active Substance: MAGNESIUM
     Dosage: 200 MG, QD
     Route: 048
     Dates: start: 20161120, end: 20161229
  2. CAFFEINE. [Concomitant]
     Active Substance: CAFFEINE
     Dosage: UNK
     Route: 048
     Dates: start: 20161110, end: 20161229
  3. TDAP IPV [Concomitant]
     Active Substance: DIPHTHERIA AND TETANUS TOXOIDS AND ACELLULAR PERTUSSIS ADSORBED AND INACTIVATED POLIOVIRUS VACCINE
     Route: 030
  4. VITAMIN C [Concomitant]
     Active Substance: ASCORBIC ACID
     Dosage: UNK
     Route: 048
     Dates: start: 20161120, end: 20161229
  5. VITAMIN D3 [Concomitant]
     Active Substance: CHOLECALCIFEROL
     Dosage: UNK
     Route: 048
     Dates: start: 20161120, end: 20161229
  6. ZOLOFT [Concomitant]
     Active Substance: SERTRALINE HYDROCHLORIDE
     Indication: DEPRESSION
     Dosage: UNK, UNK, QD
     Route: 048
     Dates: start: 20161110, end: 20161229
  7. ACEBUTOLOL HCL [Concomitant]
     Active Substance: ACEBUTOLOL
     Indication: HEART RATE INCREASED
     Dosage: UNK, UNK, QD
     Route: 048
     Dates: start: 20161110, end: 20161229
  8. LIQUOR [Concomitant]
     Dosage: UNK
     Route: 048
     Dates: start: 20161114, end: 20161114
  9. ENTYVIO [Suspect]
     Active Substance: VEDOLIZUMAB
     Indication: CROHN^S DISEASE
     Dosage: UNK
     Route: 042
     Dates: start: 20150915, end: 20161229
  10. CAL APATITE                        /07267701/ [Concomitant]
     Dosage: UNK, UNK, QD
     Route: 048
     Dates: start: 20161120, end: 20161229
  11. DHA [Concomitant]
     Active Substance: DIETARY SUPPLEMENT
     Dosage: UNK, UNK, QD
     Route: 048
     Dates: start: 20161120, end: 20161229
  12. INFLUENZA VACCINE [Concomitant]
     Active Substance: INFLUENZA VIRUS VACCINE
     Dosage: UNK
     Route: 030
     Dates: start: 20161001, end: 20161010
  13. ZYRTEC [Concomitant]
     Active Substance: CETIRIZINE HYDROCHLORIDE
     Indication: HYPERSENSITIVITY
     Dosage: UNK, UNK, QD
     Route: 048
     Dates: start: 20161110, end: 20161229

REACTIONS (3)
  - Pregnancy [Unknown]
  - Abortion spontaneous [Unknown]
  - Off label use [Unknown]
